FAERS Safety Report 25444647 (Version 1)
Quarter: 2025Q2

REPORT INFORMATION
  Report Type: Spontaneous
  Country: NL (occurrence: NL)
  Receive Date: 20250617
  Receipt Date: 20250617
  Transmission Date: 20250716
  Serious: Yes (Hospitalization)
  Sender: CHEPLAPHARM
  Company Number: None

PATIENT
  Age: 57 Year
  Sex: Male
  Weight: 95.599 kg

DRUGS (8)
  1. CAPECITABINE [Suspect]
     Active Substance: CAPECITABINE
     Indication: Oesophageal carcinoma
     Dates: start: 2022
  2. CAPECITABINE [Suspect]
     Active Substance: CAPECITABINE
     Indication: Oesophageal carcinoma
     Dosage: 2DD 3 PIECES, 2 WEEKS FOLLOWED BY 1 WEEK REST?DAILY DOSE: 3000 MILLIGRAM
     Route: 048
     Dates: start: 20241108
  3. NIVOLUMAB [Suspect]
     Active Substance: NIVOLUMAB
     Indication: No adverse event
     Dates: start: 2022
  4. NIVOLUMAB [Suspect]
     Active Substance: NIVOLUMAB
     Indication: Oesophageal carcinoma
     Dates: start: 2022
  5. NIVOLUMAB [Suspect]
     Active Substance: NIVOLUMAB
     Indication: No adverse event
     Dosage: 1X EVERY 3 WEEKS 360MG
     Dates: start: 20241108
  6. NIVOLUMAB [Suspect]
     Active Substance: NIVOLUMAB
     Indication: Oesophageal carcinoma
     Dosage: 1X EVERY 3 WEEKS 360MG
     Dates: start: 20241108
  7. CEFTRIAXONE [Concomitant]
     Active Substance: CEFTRIAXONE
  8. CIPROFLOXACIN [Concomitant]
     Active Substance: CIPROFLOXACIN
     Route: 048

REACTIONS (2)
  - Pneumonitis [Recovering/Resolving]
  - Organising pneumonia [Recovering/Resolving]
